FAERS Safety Report 5208822-4 (Version None)
Quarter: 2007Q1

REPORT INFORMATION
  Report Type: 
  Country: None (occurrence: None)
  Receive Date: 20070116
  Receipt Date: 20070104
  Transmission Date: 20070707
  Serious: Yes (Other)
  Sender: FDA-Public Use
  Company Number: DE-ELI_LILLY_AND_COMPANY-DE200701002119

PATIENT
  Age: 60 Year
  Sex: Male

DRUGS (2)
  1. GEMZAR [Suspect]
     Indication: BLADDER CANCER STAGE III
     Route: 042
     Dates: end: 20061001
  2. CISPLATIN [Concomitant]

REACTIONS (3)
  - DERMATITIS ALLERGIC [None]
  - DYSPNOEA [None]
  - POLYNEUROPATHY [None]
